FAERS Safety Report 5577658-7 (Version None)
Quarter: 2007Q4

REPORT INFORMATION
  Report Type: 
  Country: None (occurrence: None)
  Receive Date: 20071231
  Receipt Date: 20071221
  Transmission Date: 20080405
  Serious: Yes (Other)
  Sender: FDA-Public Use
  Company Number: PHMT2007CA02415

PATIENT
  Age: 48 Year
  Sex: Female
  Weight: 45.351 kg

DRUGS (1)
  1. LOPRESSOR [Suspect]
     Indication: TACHYCARDIA
     Dosage: 50 MG, BID
     Route: 048
     Dates: start: 19970101

REACTIONS (4)
  - MULTIPLE SCLEROSIS [None]
  - PARAESTHESIA [None]
  - TACHYCARDIA [None]
  - UNDERWEIGHT [None]
